FAERS Safety Report 8580200-X (Version None)
Quarter: 2012Q3

REPORT INFORMATION
  Report Type: 
  Country: None (occurrence: None)
  Receive Date: 20120808
  Receipt Date: 20120725
  Transmission Date: 20120928
  Serious: Yes (Other)
  Sender: FDA-Public Use
  Company Number: IT-MYLANLABS-2012S1015366

PATIENT
  Age: 55 Year
  Sex: Male

DRUGS (5)
  1. LEVOTHYROXINE SODIUM [Suspect]
     Dosage: BEFORE BREAKFAST
     Route: 065
  2. SEVELAMER HYDROCHLORIDE [Interacting]
     Indication: CHELATION THERAPY
     Dosage: AT BREAKFAST (SPONTANEOUS CONSUMPTION)
     Route: 065
  3. PANTOPRAZOLE [Concomitant]
     Dosage: IN THE MORNING
     Route: 065
  4. SEVELAMER HYDROCHLORIDE [Interacting]
     Dosage: AT LUNCH AND DINNER (PRESCRIBED MEDICATION)
     Route: 065
  5. RAMIPRIL [Concomitant]
     Dosage: 10MG
     Route: 065

REACTIONS (2)
  - HYPOTHYROIDISM [None]
  - INHIBITORY DRUG INTERACTION [None]
